FAERS Safety Report 7719200-8 (Version None)
Quarter: 2011Q3

REPORT INFORMATION
  Report Type: 
  Country: None (occurrence: None)
  Receive Date: 20110830
  Receipt Date: 20110822
  Transmission Date: 20111222
  Serious: Yes (Hospitalization)
  Sender: FDA-Public Use
  Company Number: US-PURDUE-USA-2011-0074005

PATIENT
  Age: 34 Year
  Sex: Male

DRUGS (2)
  1. OXYCODONE HCL CR TABLETS (SIMILAR TO NDA 22-272) [Concomitant]
     Indication: BREAKTHROUGH PAIN
     Dosage: 30 MG, SEE TEXT
     Route: 048
  2. OXYCONTIN [Suspect]
     Indication: NECK PAIN
     Dosage: 80 MG, BID
     Route: 048
     Dates: start: 20110101

REACTIONS (6)
  - DEHYDRATION [None]
  - ABDOMINAL PAIN UPPER [None]
  - EAR INFECTION [None]
  - NAUSEA [None]
  - VOMITING [None]
  - INADEQUATE ANALGESIA [None]
